FAERS Safety Report 8853781 (Version 1)
Quarter: 2012Q4

REPORT INFORMATION
  Report Type: 
  Country: SE (occurrence: SE)
  Receive Date: 20121023
  Receipt Date: 20121023
  Transmission Date: 20130627
  Serious: Yes (Hospitalization, Other)
  Sender: FDA-Public Use
  Company Number: SE-ELI_LILLY_AND_COMPANY-SE201210003919

PATIENT
  Age: 32 Year
  Sex: Female

DRUGS (4)
  1. OLANZAPINE [Suspect]
     Dosage: UNK, unknown
  2. INFLEXAL [Concomitant]
     Indication: IMMUNISATION
     Dosage: UNK
     Dates: start: 20111115, end: 20111115
  3. IKTORIVIL [Concomitant]
  4. ERGENYL [Concomitant]

REACTIONS (7)
  - Confusional state [Not Recovered/Not Resolved]
  - Hallucination [Not Recovered/Not Resolved]
  - Chills [Unknown]
  - Flushing [Unknown]
  - Muscle spasms [Unknown]
  - Pyrexia [Unknown]
  - Convulsion [Unknown]
